FAERS Safety Report 9498654 (Version 2)
Quarter: 2013Q3

REPORT INFORMATION
  Report Type: Report from Study
  Country: US (occurrence: US)
  Receive Date: 20130904
  Receipt Date: 20130925
  Transmission Date: 20140515
  Serious: No
  Sender: FDA-Public Use
  Company Number: US-VERTEX PHARMACEUTICALS INC-2013-009193

PATIENT
  Sex: Male

DRUGS (8)
  1. VX-950 (TELAPREVIR) [Suspect]
     Indication: HEPATITIS C
     Dosage: UNK
     Dates: start: 20130612, end: 20130702
  2. RIBAVIRIN [Suspect]
     Indication: HEPATITIS C
     Dosage: 600 MG, BID
     Route: 048
     Dates: start: 20130612
  3. PEGINTRON [Suspect]
     Indication: HEPATITIS C
     Dosage: 150 ?G, QW
     Route: 058
     Dates: start: 20130612
  4. ONDANSETRON [Concomitant]
     Dosage: 4 MG, UNK
  5. SERTRALINE [Concomitant]
     Dosage: 50 MG, QD
  6. VITAMIN C [Concomitant]
     Dosage: 1000 MG, QD
  7. VITAMIN E [Concomitant]
     Dosage: 400 MG, QD
  8. CITRUCEL [Concomitant]
     Dosage: UNK

REACTIONS (4)
  - Diarrhoea [Recovered/Resolved]
  - Rectal haemorrhage [Unknown]
  - Proctalgia [Unknown]
  - Nausea [Unknown]
